FAERS Safety Report 11021572 (Version 1)
Quarter: 2015Q2

REPORT INFORMATION
  Report Type: Spontaneous
  Country: US (occurrence: US)
  Receive Date: 20150413
  Receipt Date: 20150413
  Transmission Date: 20150821
  Serious: Yes (Other)
  Sender: FDA-Public Use
  Company Number: US-ENDO PHARMACEUTICALS INC.-HYDR20150005

PATIENT
  Sex: Female

DRUGS (1)
  1. HYDROCORTISONE TABLETS 5MG [Suspect]
     Active Substance: HYDROCORTISONE
     Indication: ADDISON^S DISEASE
     Route: 065
     Dates: start: 2011, end: 2014

REACTIONS (12)
  - Drug ineffective [Recovering/Resolving]
  - Maternal exposure timing unspecified [None]
  - Malaise [None]
  - Weight decreased [None]
  - Disturbance in attention [None]
  - Anxiety [None]
  - Mobility decreased [None]
  - Product substitution issue [None]
  - Abortion spontaneous [Recovered/Resolved]
  - Tinnitus [None]
  - Dizziness [None]
  - Asthenia [None]

NARRATIVE: CASE EVENT DATE: 2014
